FAERS Safety Report 24285314 (Version 1)
Quarter: 2024Q3

REPORT INFORMATION
  Report Type: Spontaneous
  Country: CN (occurrence: CN)
  Receive Date: 20240905
  Receipt Date: 20240905
  Transmission Date: 20241017
  Serious: Yes (Life-Threatening, Hospitalization)
  Sender: ACCORD
  Company Number: CN-Accord-444091

PATIENT
  Age: 58 Year
  Sex: Male

DRUGS (3)
  1. CISPLATIN [Suspect]
     Active Substance: CISPLATIN
     Indication: Nasopharyngeal cancer
     Dosage: 1 CYCLE
     Dates: start: 20221001, end: 202210
  2. DOCETAXEL [Suspect]
     Active Substance: DOCETAXEL\DOCETAXEL ANHYDROUS
     Indication: Nasopharyngeal cancer
     Dosage: 1 CYCLE
     Dates: start: 20221001, end: 202210
  3. FLUOROURACIL [Suspect]
     Active Substance: FLUOROURACIL
     Indication: Nasopharyngeal cancer
     Dosage: 1 CYCLE
     Dates: start: 20221001, end: 202210

REACTIONS (10)
  - Septic shock [Recovering/Resolving]
  - Diarrhoea [Recovering/Resolving]
  - Dysbiosis [Recovering/Resolving]
  - Myelosuppression [Recovering/Resolving]
  - Mycobacterium abscessus infection [Recovered/Resolved]
  - Febrile neutropenia [Recovering/Resolving]
  - Pneumonia bacterial [Recovering/Resolving]
  - Gait disturbance [Recovering/Resolving]
  - Atypical mycobacterial infection [Recovering/Resolving]
  - Aspiration [Recovering/Resolving]

NARRATIVE: CASE EVENT DATE: 20221001
